FAERS Safety Report 15788949 (Version 1)
Quarter: 2019Q1

REPORT INFORMATION
  Report Type: Spontaneous
  Country: JP (occurrence: JP)
  Receive Date: 20190104
  Receipt Date: 20190104
  Transmission Date: 20190417
  Serious: Yes (Other)
  Sender: FDA-Public Use
  Company Number: JP-009507513-1812JPN001258J

PATIENT
  Age: 74 Year
  Sex: Female

DRUGS (2)
  1. BELSOMRA [Suspect]
     Active Substance: SUVOREXANT
     Indication: INSOMNIA
     Dosage: 15 MILLIGRAM, QD
     Route: 048
     Dates: end: 20181210
  2. DEPAS (ETIZOLAM) [Concomitant]
     Active Substance: ETIZOLAM
     Dosage: UNK
     Route: 065

REACTIONS (1)
  - Muscular weakness [Unknown]
